FAERS Safety Report 12367990 (Version 1)
Quarter: 2016Q2

REPORT INFORMATION
  Report Type: Spontaneous
  Country: US (occurrence: US)
  Receive Date: 20160513
  Receipt Date: 20160513
  Transmission Date: 20160815
  Serious: No
  Sender: FDA-Public Use
  Company Number: US-ASTRAZENECA-2016SE38271

PATIENT
  Age: 27081 Day
  Sex: Female
  Weight: 68 kg

DRUGS (5)
  1. RHINOCORT AQUA [Suspect]
     Active Substance: BUDESONIDE
     Indication: SEASONAL ALLERGY
     Route: 045
     Dates: start: 20160330, end: 20160402
  2. RHINOCORT AQUA [Suspect]
     Active Substance: BUDESONIDE
     Indication: SEASONAL ALLERGY
     Dosage: 32 MCG, ONE SPRAY TO EACH NOSTRIL, DAILY
     Route: 045
     Dates: start: 2004, end: 2015
  3. VALIUM [Concomitant]
     Active Substance: DIAZEPAM
     Indication: HYPOTONIA
     Route: 048
  4. VITAMINS NOS [Concomitant]
     Active Substance: VITAMINS
     Route: 048
  5. TAGAMET [Concomitant]
     Active Substance: CIMETIDINE
     Indication: EPIGASTRIC DISCOMFORT
     Route: 048

REACTIONS (2)
  - Abdominal discomfort [Recovered/Resolved]
  - Nausea [Recovered/Resolved]

NARRATIVE: CASE EVENT DATE: 20160330
